FAERS Safety Report 8312143-0 (Version None)
Quarter: 2012Q2

REPORT INFORMATION
  Report Type: 
  Country: None (occurrence: None)
  Receive Date: 20120425
  Receipt Date: 20110808
  Transmission Date: 20120825
  Serious: Yes (Other)
  Sender: FDA-Public Use
  Company Number: US-TEVA-US017829

PATIENT
  Sex: Female
  Weight: 84 kg

DRUGS (7)
  1. IRON [Concomitant]
     Indication: ANAEMIA
     Route: 048
  2. PROVIGIL [Suspect]
     Indication: FATIGUE
     Dosage: 100 MILLIGRAM;
     Route: 048
     Dates: start: 20060621
  3. PROVIGIL [Suspect]
     Indication: ASTHENIA
  4. PROZAC [Concomitant]
     Indication: DEPRESSION
     Dosage: 20 MILLIGRAM;
     Route: 048
     Dates: start: 19890101
  5. XANAX [Concomitant]
     Indication: NERVOUSNESS
     Route: 048
  6. CLIMARA [Concomitant]
     Indication: HORMONE THERAPY
     Route: 062
     Dates: start: 20060101
  7. LORTAB [Concomitant]
     Indication: ARTHRITIS
     Route: 048

REACTIONS (3)
  - FRUSTRATION [None]
  - DEPRESSED MOOD [None]
  - ANGER [None]
